FAERS Safety Report 23317728 (Version 5)
Quarter: 2025Q1

REPORT INFORMATION
  Report Type: Spontaneous
  Country: US (occurrence: US)
  Receive Date: 20231219
  Receipt Date: 20250322
  Transmission Date: 20250409
  Serious: No
  Sender: ROCHE
  Company Number: US-ROCHE-3398291

PATIENT
  Age: 31 Year
  Sex: Male
  Weight: 112.94 kg

DRUGS (1)
  1. HEMLIBRA [Suspect]
     Active Substance: EMICIZUMAB-KXWH
     Indication: Factor VIII deficiency
     Dosage: STRENGTH-105MG/0.7ML
     Route: 058
     Dates: start: 202212

REACTIONS (9)
  - Arthralgia [Unknown]
  - Pain [Unknown]
  - Haemorrhage [Recovered/Resolved]
  - Off label use [Unknown]
  - Fall [Unknown]
  - Muscle haemorrhage [Not Recovered/Not Resolved]
  - Limb injury [Unknown]
  - Erythema [Unknown]
  - Road traffic accident [Unknown]

NARRATIVE: CASE EVENT DATE: 20230715
